FAERS Safety Report 6392278-2 (Version None)
Quarter: 2009Q4

REPORT INFORMATION
  Report Type: 
  Country: None (occurrence: None)
  Receive Date: 20091007
  Receipt Date: 20090924
  Transmission Date: 20100525
  Serious: Yes (Other)
  Sender: FDA-Public Use
  Company Number: ES-PFIZER INC-2009275462

PATIENT
  Age: 65 Year

DRUGS (1)
  1. TOLTERODINE TARTRATE [Suspect]
     Indication: PROSTATIC OPERATION
     Dosage: 4 MG, 1X/DAY
     Route: 048
     Dates: start: 20080617, end: 20080628

REACTIONS (3)
  - HYPOAESTHESIA [None]
  - PAIN IN EXTREMITY [None]
  - WALKING DISABILITY [None]
